FAERS Safety Report 6959469-0 (Version None)
Quarter: 2010Q3

REPORT INFORMATION
  Report Type: 
  Country: None (occurrence: None)
  Receive Date: 20100827
  Receipt Date: 20100816
  Transmission Date: 20110219
  Serious: Yes (Other)
  Sender: FDA-Public Use
  Company Number: 2010102987

PATIENT
  Age: 72 Year
  Sex: Male
  Weight: 99.8 kg

DRUGS (10)
  1. FRAGMIN [Suspect]
     Indication: THROMBOSIS
     Dosage: 18000 IU, 1X/DAY, SUBCUTANEOUS
     Route: 058
     Dates: start: 20100101
  2. COUMADIN [Suspect]
  3. LISINOPRIL [Concomitant]
  4. TOPROL-XL [Concomitant]
  5. ZOCOR [Concomitant]
  6. LASIX [Concomitant]
  7. CELEXA [Concomitant]
  8. COMBIVENT (IPRATROPIUM BROMIDE, SALBUTAMOL SULFATE) INHALATION VAPOR, [Concomitant]
  9. CARDIZEM (DILTIAZEM HYDROCHLORIDE) MODIFIED-RELEASE TABLET [Concomitant]
  10. NAPROSYN [Concomitant]

REACTIONS (3)
  - INFLAMMATION [None]
  - JOINT SWELLING [None]
  - SWELLING [None]
